FAERS Safety Report 5166182-1 (Version None)
Quarter: 2006Q4

REPORT INFORMATION
  Report Type: 
  Country: None (occurrence: None)
  Receive Date: 20061129
  Receipt Date: 20061116
  Transmission Date: 20070319
  Serious: Yes (Other)
  Sender: FDA-Public Use
  Company Number: 2006142687

PATIENT
  Age: 54 Year
  Sex: Female

DRUGS (1)
  1. GEODON [Suspect]
     Dosage: 80 MG (40 MG, 2 IN 1 D)
     Dates: start: 20060101

REACTIONS (1)
  - HAEMORRHAGE [None]
